FAERS Safety Report 12356499 (Version 7)
Quarter: 2016Q3

REPORT INFORMATION
  Report Type: Report from Study
  Country: US (occurrence: US)
  Receive Date: 20160511
  Receipt Date: 20160912
  Transmission Date: 20161109
  Serious: Yes (Other)
  Sender: FDA-Public Use
  Company Number: US-JNJFOC-20160509320

PATIENT
  Age: 85 Year
  Sex: Female

DRUGS (12)
  1. AMIODARONE [Concomitant]
     Active Substance: AMIODARONE
  2. WARFARIN [Suspect]
     Active Substance: WARFARIN
     Indication: PRODUCT USED FOR UNKNOWN INDICATION
  3. POTASSIUM [Concomitant]
     Active Substance: POTASSIUM
  4. CYANOCOBALAMIN. [Concomitant]
     Active Substance: CYANOCOBALAMIN
  5. DIOVAN [Concomitant]
     Active Substance: VALSARTAN
  6. IMBRUVICA [Suspect]
     Active Substance: IBRUTINIB
     Indication: CHRONIC LYMPHOCYTIC LEUKAEMIA
     Route: 048
     Dates: start: 20150123
  7. AMLODIPINE [Concomitant]
     Active Substance: AMLODIPINE BESYLATE
  8. METOPROLOL. [Concomitant]
     Active Substance: METOPROLOL
  9. MAGNESIUM [Concomitant]
     Active Substance: MAGNESIUM
  10. CRANBERRY. [Concomitant]
     Active Substance: CRANBERRY
  11. VITAMIN D [Concomitant]
     Active Substance: CHOLECALCIFEROL
  12. CALCIUM CITRATE [Concomitant]
     Active Substance: CALCIUM CITRATE

REACTIONS (19)
  - Rhinorrhoea [Unknown]
  - Petechiae [Recovering/Resolving]
  - Haemorrhage [Unknown]
  - Vessel perforation [Unknown]
  - Soft tissue swelling [Unknown]
  - Blood urine present [Unknown]
  - Eye contusion [Unknown]
  - Nasopharyngitis [Unknown]
  - Throat irritation [Unknown]
  - Incorrect dose administered [Not Recovered/Not Resolved]
  - Cellulitis [Unknown]
  - Off label use [Not Recovered/Not Resolved]
  - Rash erythematous [Recovered/Resolved]
  - Dysphonia [Unknown]
  - Prothrombin time abnormal [Unknown]
  - Ocular hyperaemia [Unknown]
  - Fall [Unknown]
  - Contusion [Unknown]
  - Headache [Unknown]

NARRATIVE: CASE EVENT DATE: 20150123
